FAERS Safety Report 9123704 (Version 2)
Quarter: 2013Q2

REPORT INFORMATION
  Report Type: Spontaneous
  Country: GB (occurrence: GB)
  Receive Date: 20130227
  Receipt Date: 20130507
  Transmission Date: 20140414
  Serious: Yes (Hospitalization)
  Sender: FDA-Public Use
  Company Number: PHHY2013GB017744

PATIENT
  Age: 90 Year
  Sex: Female

DRUGS (2)
  1. METFORMIN [Suspect]
  2. ONGLYZA [Suspect]
     Dosage: 2.5 MG

REACTIONS (3)
  - Glomerular filtration rate decreased [Unknown]
  - Weight decreased [Unknown]
  - Drug ineffective [Unknown]
